FAERS Safety Report 6969176-6 (Version None)
Quarter: 2010Q3

REPORT INFORMATION
  Report Type: 
  Country: None (occurrence: None)
  Receive Date: 20100907
  Receipt Date: 20100826
  Transmission Date: 20110219
  Serious: Yes (Hospitalization, Other)
  Sender: FDA-Public Use
  Company Number: PHHY2010TH56188

PATIENT
  Age: 80 Year
  Sex: Female

DRUGS (1)
  1. ZOLEDRONIC [Suspect]
     Indication: OSTEOPOROSIS
     Dosage: UNK

REACTIONS (5)
  - HYPOTENSION [None]
  - PROTEINURIA [None]
  - PYREXIA [None]
  - RENAL FAILURE [None]
  - SYNCOPE [None]
